FAERS Safety Report 9869862 (Version 1)
Quarter: 2014Q1

REPORT INFORMATION
  Report Type: Spontaneous
  Country: IT (occurrence: None)
  Receive Date: 20140203
  Receipt Date: 20140203
  Transmission Date: 20141002
  Serious: Yes (Other)
  Sender: FDA-Public Use
  Company Number: 2014-PEL-000014

PATIENT
  Age: 59 Year
  Sex: Male

DRUGS (4)
  1. SEVOFLURANE PIRAMAL [Suspect]
     Indication: OCCUPATIONAL EXPOSURE TO PRODUCT
     Dates: start: 1990
  2. NITROUS OXIDE [Suspect]
     Indication: OCCUPATIONAL EXPOSURE TO PRODUCT
     Dates: end: 2005
  3. HALOTHANE [Suspect]
     Indication: OCCUPATIONAL EXPOSURE TO PRODUCT
     Dates: start: 1983, end: 1990
  4. ISOFLURANE [Suspect]
     Indication: OCCUPATIONAL EXPOSURE TO PRODUCT
     Dates: start: 1983, end: 1990

REACTIONS (3)
  - Parkinson^s disease [None]
  - Accidental exposure to product [None]
  - Occupational exposure to product [None]
